FAERS Safety Report 21344314 (Version 5)
Quarter: 2022Q4

REPORT INFORMATION
  Report Type: Report from Study
  Country: US (occurrence: US)
  Receive Date: 20220916
  Receipt Date: 20221229
  Transmission Date: 20230113
  Serious: Yes (Hospitalization, Other)
  Sender: FDA-Public Use
  Company Number: US-NOVARTISTESTPH-NVSC2022US209609

PATIENT
  Sex: Female

DRUGS (1)
  1. ENTRESTO [Suspect]
     Active Substance: SACUBITRIL\VALSARTAN
     Indication: Product used for unknown indication
     Dosage: UNK
     Route: 065

REACTIONS (7)
  - Atrial fibrillation [Unknown]
  - Hypotension [Unknown]
  - Nasal congestion [Unknown]
  - Rhinorrhoea [Unknown]
  - Fluid retention [Unknown]
  - Fatigue [Unknown]
  - Dizziness [Unknown]
